FAERS Safety Report 6715623-4 (Version None)
Quarter: 2010Q2

REPORT INFORMATION
  Report Type: 
  Country: None (occurrence: None)
  Receive Date: 20100507
  Receipt Date: 20100426
  Transmission Date: 20101027
  Serious: Yes (Death)
  Sender: FDA-Public Use
  Company Number: NL-ROCHE-700111

PATIENT
  Sex: Female
  Weight: 106 kg

DRUGS (4)
  1. KYTRIL [Suspect]
     Indication: NAUSEA
     Route: 042
     Dates: start: 20091111, end: 20091111
  2. EFFEXOR [Interacting]
     Indication: DEPRESSIVE SYMPTOM
     Route: 048
     Dates: start: 20090101
  3. METHYLENE BLUE [Interacting]
     Indication: PARATHYROID GLAND OPERATION
     Route: 042
     Dates: start: 20091111, end: 20091111
  4. SUFENTA PRESERVATIVE FREE [Interacting]
     Indication: SURGERY
     Route: 065
     Dates: start: 20091111, end: 20091111

REACTIONS (2)
  - DRUG INTERACTION [None]
  - SEROTONIN SYNDROME [None]
